FAERS Safety Report 8310946 (Version 2)
Quarter: 2013Q2

REPORT INFORMATION
  Report Type: Report from Study
  Country: VE (occurrence: VE)
  Receive Date: 20111226
  Receipt Date: 20130426
  Transmission Date: 20140414
  Serious: Yes (Hospitalization)
  Sender: FDA-Public Use
  Company Number: PHHY2011VE104913

PATIENT
  Age: 72 Year
  Sex: Female

DRUGS (7)
  1. ACLASTA [Suspect]
     Indication: OSTEOPOROSIS
     Dosage: 5 MG / ML ANNUAL
     Route: 042
     Dates: start: 2010
  2. CATAFLAM [Concomitant]
     Indication: ANTIINFLAMMATORY THERAPY
     Dosage: 1 TABLET, BID
  3. CEFADROXIL [Concomitant]
     Dosage: 500 MG, EACH 8 HOURS
  4. VITAMIN C [Concomitant]
     Indication: URINARY TRACT INFECTION
     Dosage: UNK UKN, QD
  5. GENURIN [Concomitant]
     Indication: URINARY TRACT INFECTION
     Dosage: UNK
  6. PROFENID [Concomitant]
     Indication: PAIN
     Dosage: ONE PILL EACH 8 OR 12 HOURS
  7. ZANIDIP [Concomitant]
     Indication: HYPERTENSION
     Dosage: UNK
     Route: 048

REACTIONS (3)
  - Incontinence [Not Recovered/Not Resolved]
  - Bladder prolapse [Not Recovered/Not Resolved]
  - Bladder disorder [Recovering/Resolving]
